FAERS Safety Report 12624455 (Version 3)
Quarter: 2017Q2

REPORT INFORMATION
  Report Type: Spontaneous
  Country: JP (occurrence: JP)
  Receive Date: 20160805
  Receipt Date: 20170630
  Transmission Date: 20170830
  Serious: Yes (Hospitalization)
  Sender: FDA-Public Use
  Company Number: JP-TAKEDA-2016TJP016027

PATIENT
  Age: 8 Decade
  Sex: Female

DRUGS (1)
  1. LANSOPRAZOLE. [Suspect]
     Active Substance: LANSOPRAZOLE
     Indication: GASTROOESOPHAGEAL REFLUX DISEASE
     Dosage: UNK
     Route: 048

REACTIONS (4)
  - Frequent bowel movements [Recovered/Resolved]
  - Colitis microscopic [Recovered/Resolved]
  - Occult blood positive [Recovered/Resolved]
  - Enterocolitis haemorrhagic [Recovering/Resolving]

NARRATIVE: CASE EVENT DATE: 201208
